FAERS Safety Report 10612476 (Version 3)
Quarter: 2015Q2

REPORT INFORMATION
  Report Type: Spontaneous
  Country: US (occurrence: US)
  Receive Date: 20141127
  Receipt Date: 20150630
  Transmission Date: 20150821
  Serious: Yes (Hospitalization)
  Sender: FDA-Public Use
  Company Number: US-BIOGENIDEC-2014BI123390

PATIENT
  Age: 53 Year
  Sex: Female

DRUGS (15)
  1. LUNESTA [Concomitant]
     Active Substance: ESZOPICLONE
  2. REBIF [Concomitant]
     Active Substance: INTERFERON BETA-1A
  3. AVONEX [Suspect]
     Active Substance: INTERFERON BETA-1A
     Indication: PRODUCT USED FOR UNKNOWN INDICATION
     Route: 030
  4. DDAVP [Concomitant]
     Active Substance: DESMOPRESSIN ACETATE
  5. XANAX [Concomitant]
     Active Substance: ALPRAZOLAM
  6. BACLOFEN. [Concomitant]
     Active Substance: BACLOFEN
  7. TYLENOL [Concomitant]
     Active Substance: ACETAMINOPHEN
  8. AMPYRA [Concomitant]
     Active Substance: DALFAMPRIDINE
     Indication: MULTIPLE SCLEROSIS
  9. TRAMADOL [Concomitant]
     Active Substance: TRAMADOL
  10. CALTRATE [Concomitant]
     Active Substance: CALCIUM CARBONATE
  11. FOSAMAX [Concomitant]
     Active Substance: ALENDRONATE SODIUM
  12. METHOCARBAMIOL [Concomitant]
  13. BETASERON [Concomitant]
     Active Substance: INTERFERON BETA-1B
     Dates: start: 2003
  14. TOPROL XL [Concomitant]
     Active Substance: METOPROLOL SUCCINATE
  15. VITAMIN D [Concomitant]
     Active Substance: CHOLECALCIFEROL

REACTIONS (6)
  - Confusional state [Recovered/Resolved]
  - Influenza like illness [Recovered/Resolved]
  - Flushing [Unknown]
  - Hypersomnia [Recovered/Resolved]
  - Cerebrovascular accident [Recovered/Resolved]
  - Disorientation [Recovered/Resolved]

NARRATIVE: CASE EVENT DATE: 20120430
